FAERS Safety Report 7519711-4 (Version None)
Quarter: 2011Q2

REPORT INFORMATION
  Report Type: 
  Country: None (occurrence: None)
  Receive Date: 20110524
  Receipt Date: 20110510
  Transmission Date: 20111010
  Serious: Yes (Congenital Anomaly)
  Sender: FDA-Public Use
  Company Number: 1000020997

PATIENT

DRUGS (2)
  1. LEXAPRO [Suspect]
     Dosage: 20 MG (20 MG, 1 IN 1 D), TRANSPLACENTAL
     Route: 064
     Dates: start: 20100401
  2. OXAZEPAM [Suspect]
     Dosage: 60 MG (60 MG, 1 IN 1 D), TRANSPLACENTAL
     Route: 064
     Dates: start: 20100401

REACTIONS (2)
  - MATERNAL DRUGS AFFECTING FOETUS [None]
  - SPINE MALFORMATION [None]
